FAERS Safety Report 24420728 (Version 1)
Quarter: 2024Q4

REPORT INFORMATION
  Report Type: Spontaneous
  Country: DE (occurrence: DE)
  Receive Date: 20241010
  Receipt Date: 20241010
  Transmission Date: 20250115
  Serious: Yes (Hospitalization)
  Sender: ROCHE
  Company Number: None

PATIENT
  Age: 83 Year
  Sex: Male
  Weight: 72 kg

DRUGS (1)
  1. AVASTIN [Suspect]
     Active Substance: BEVACIZUMAB
     Indication: Breast cancer female
     Dosage: DAILY DOSE: 1.25 MG EVERY 00:00:01
     Route: 050

REACTIONS (3)
  - Vitreous opacities [Not Recovered/Not Resolved]
  - Off label use [Unknown]
  - Ocular discomfort [Not Recovered/Not Resolved]

NARRATIVE: CASE EVENT DATE: 20240912
